FAERS Safety Report 9186802 (Version 1)
Quarter: 2012Q4

REPORT INFORMATION
  Report Type: 
  Country: US (occurrence: US)
  Receive Date: 20121102
  Receipt Date: 20121102
  Transmission Date: 20130627
  Serious: No
  Sender: FDA-Public Use
  Company Number: US-PFIZER INC-2012267122

PATIENT
  Sex: Female

DRUGS (2)
  1. GABAPENTIN [Suspect]
     Indication: TMJ SYNDROME
     Dosage: UNK
  2. GABAPENTIN [Suspect]
     Indication: NERVE PAIN

REACTIONS (2)
  - Fibromyalgia [Unknown]
  - Drug effect incomplete [Unknown]
